FAERS Safety Report 25016579 (Version 1)
Quarter: 2025Q1

REPORT INFORMATION
  Report Type: Spontaneous
  Country: CN (occurrence: CN)
  Receive Date: 20250227
  Receipt Date: 20250227
  Transmission Date: 20250408
  Serious: Yes (Hospitalization, Other)
  Sender: SANOFI AVENTIS
  Company Number: CN-SA-2025SA057630

PATIENT
  Age: 72 Year
  Sex: Male

DRUGS (2)
  1. PLAVIX [Suspect]
     Active Substance: CLOPIDOGREL BISULFATE
     Indication: Antiplatelet therapy
     Dosage: 75.000MG QD
     Route: 048
     Dates: start: 20210723, end: 20250216
  2. ATORVASTATIN CALCIUM [Concomitant]
     Active Substance: ATORVASTATIN CALCIUM
     Route: 048
     Dates: start: 202107

REACTIONS (5)
  - Gastritis erosive [Recovering/Resolving]
  - Duodenal ulcer haemorrhage [Recovered/Resolved]
  - Haematemesis [Recovered/Resolved]
  - Melaena [Recovered/Resolved]
  - Duodenal stenosis [Recovering/Resolving]

NARRATIVE: CASE EVENT DATE: 20250215
